FAERS Safety Report 7060613-8 (Version None)
Quarter: 2010Q4

REPORT INFORMATION
  Report Type: 
  Country: None (occurrence: None)
  Receive Date: 20101025
  Receipt Date: 20101018
  Transmission Date: 20110411
  Serious: Yes (Hospitalization, Other)
  Sender: FDA-Public Use
  Company Number: US-ELI_LILLY_AND_COMPANY-US200812001784

PATIENT
  Sex: Male
  Weight: 89 kg

DRUGS (8)
  1. BYETTA [Suspect]
     Dosage: 5 UG, 2/D
     Route: 058
     Dates: start: 20080716, end: 20080901
  2. NOVOLOG MIX 70/30 [Concomitant]
     Dosage: 60 U, EACH MORNING
     Route: 058
  3. NOVOLOG MIX 70/30 [Concomitant]
     Dosage: 45 U, EACH MORNING
     Route: 058
  4. GLUCOPHAGE [Concomitant]
     Indication: TYPE 2 DIABETES MELLITUS
     Dosage: 1000 MG, 2/D
     Route: 048
  5. RHINOCORT [Concomitant]
     Dosage: 32 UG, DAILY (1/D)
     Route: 045
  6. DICLOFENAC SODIUM [Concomitant]
     Dosage: 75 MG, 2/D
     Route: 048
  7. LISINOPRIL [Concomitant]
     Dosage: 5 MG, EACH EVENING
     Route: 048
     Dates: end: 20080901
  8. HUMULIN 70/30 [Concomitant]
     Indication: TYPE 2 DIABETES MELLITUS
     Dosage: 60 U IN MORNING, 45 U AT NIGHT
     Route: 058

REACTIONS (2)
  - OFF LABEL USE [None]
  - PANCREATITIS [None]
